FAERS Safety Report 7690389-2 (Version None)
Quarter: 2011Q3

REPORT INFORMATION
  Report Type: 
  Country: None (occurrence: None)
  Receive Date: 20110812
  Receipt Date: 20110801
  Transmission Date: 20111222
  Serious: Yes (Life-Threatening, Hospitalization)
  Sender: FDA-Public Use
  Company Number: FK201101500

PATIENT
  Age: 44 Year
  Sex: Female

DRUGS (5)
  1. INSULIN (INSULIN) [Concomitant]
  2. ENOXAPARIN SODIUM [Concomitant]
  3. MORPHINE SULFATE [Suspect]
     Indication: ANALGESIC THERAPY
     Dosage: 2 MG, PER HOUR: PCA ADMINISTRATION, INTRAVENOUS
     Route: 042
  4. MORPHINE SULFATE [Suspect]
     Dosage: 6 MG, PER HOUR:MAX. PCA DOSING, INTRAVENOUS DRIP
     Route: 041
  5. HYDROCHLOROTHIAZIDE [Concomitant]

REACTIONS (6)
  - UNRESPONSIVE TO STIMULI [None]
  - LEFT VENTRICULAR DYSFUNCTION [None]
  - CARDIOGENIC SHOCK [None]
  - METABOLIC ACIDOSIS [None]
  - RESPIRATORY ACIDOSIS [None]
  - CARDIOMEGALY [None]
